FAERS Safety Report 16448649 (Version 1)
Quarter: 2019Q2

REPORT INFORMATION
  Report Type: Spontaneous
  Country: US (occurrence: US)
  Receive Date: 20190619
  Receipt Date: 20190619
  Transmission Date: 20190711
  Serious: No
  Sender: FDA-Public Use
  Company Number: US-AUROBINDO-AUR-APL-2018-062082

PATIENT

DRUGS (1)
  1. CIPROFLOXACIN TABLETS USP 500 MG [Suspect]
     Active Substance: CIPROFLOXACIN
     Indication: INFECTION
     Dosage: UNK UNK, TWO TIMES A DAY
     Route: 065
     Dates: start: 20170118, end: 20170125

REACTIONS (4)
  - Walking disability [Recovering/Resolving]
  - Thermal burn [Recovering/Resolving]
  - Pain [Recovering/Resolving]
  - Tendonitis [Recovering/Resolving]

NARRATIVE: CASE EVENT DATE: 20180121
